FAERS Safety Report 24467894 (Version 1)
Quarter: 2024Q4

REPORT INFORMATION
  Report Type: Spontaneous
  Country: US (occurrence: US)
  Receive Date: 20241018
  Receipt Date: 20241018
  Transmission Date: 20250114
  Serious: No
  Sender: Phathom Pharmaceuticals
  Company Number: US-PHATHOM PHARMACEUTICALS INC.-2024PHT00689

PATIENT
  Age: 69 Year
  Sex: Female

DRUGS (8)
  1. VOQUEZNA [Suspect]
     Active Substance: VONOPRAZAN FUMARATE
     Indication: Oesophagitis
     Dosage: 20 MG, 1X/DAY
     Route: 048
     Dates: start: 2024
  2. VOQUEZNA [Suspect]
     Active Substance: VONOPRAZAN FUMARATE
     Indication: Gastrooesophageal reflux disease
  3. ASPIRIN [Concomitant]
     Active Substance: ASPIRIN
  4. FLUOXETINE [Concomitant]
     Active Substance: FLUOXETINE HYDROCHLORIDE
  5. FAMOTIDINE [Concomitant]
     Active Substance: FAMOTIDINE
  6. LEVOTHYROXINE [Concomitant]
     Active Substance: LEVOTHYROXINE
  7. ALIGN [Concomitant]
     Active Substance: BIFIDOBACTERIUM LONGUM SUBSP. INFANTIS
  8. ROSUVASTATIN [Concomitant]
     Active Substance: ROSUVASTATIN

REACTIONS (5)
  - Ocular discomfort [Not Recovered/Not Resolved]
  - Ear discomfort [Not Recovered/Not Resolved]
  - Dizziness [Not Recovered/Not Resolved]
  - Fatigue [Not Recovered/Not Resolved]
  - Headache [Not Recovered/Not Resolved]

NARRATIVE: CASE EVENT DATE: 20240701
